FAERS Safety Report 25535535 (Version 2)
Quarter: 2025Q4

REPORT INFORMATION
  Report Type: Spontaneous
  Country: US (occurrence: US)
  Receive Date: 20250709
  Receipt Date: 20251014
  Transmission Date: 20260118
  Serious: Yes (Hospitalization)
  Sender: BOTANIX PHARMACEUTICALS
  Company Number: US-BOTANIX PHARMACEUTICALS-2025BOT00170

PATIENT
  Age: 27 Year
  Sex: Male
  Weight: 72.6 kg

DRUGS (6)
  1. SOFDRA [Suspect]
     Active Substance: SOFPIRONIUM BROMIDE
     Indication: Hyperhidrosis
     Dosage: 1 PUMP APPLIED TO EACH UNDER ARM, 1X/DAY AT NIGHT/BEDTIME
     Route: 061
     Dates: start: 20250516, end: 20250519
  2. CRESTOR [Concomitant]
     Active Substance: ROSUVASTATIN CALCIUM
     Dosage: 5 MG, 1X/DAY
     Route: 048
  3. LEXAPRO [Concomitant]
     Active Substance: ESCITALOPRAM OXALATE
     Dosage: 5 MG, 1X/DAY
     Route: 048
  4. PROPRANOLOL [Concomitant]
     Active Substance: PROPRANOLOL HYDROCHLORIDE
     Dosage: 20 MG, 3X/DAY AS NEEDED
     Route: 048
  5. COENZYME Q10 [Concomitant]
     Active Substance: DIETARY SUPPLEMENT\UBIDECARENONE
     Dosage: 10 MG, 1X/DAY
     Route: 048
  6. FISH OIL [Concomitant]
     Active Substance: FISH OIL
     Dosage: 1 CAPSULES, 1X/DAY
     Route: 048

REACTIONS (6)
  - Mydriasis [Recovered/Resolved]
  - Vision blurred [Recovered/Resolved]
  - Urinary retention [Recovered/Resolved]
  - Application site pain [Recovered/Resolved]
  - Headache [Recovered/Resolved]
  - Dry mouth [Recovered/Resolved]

NARRATIVE: CASE EVENT DATE: 20250520
